FAERS Safety Report 22614214 (Version 2)
Quarter: 2023Q2

REPORT INFORMATION
  Report Type: Spontaneous
  Country: US (occurrence: US)
  Receive Date: 20230619
  Receipt Date: 20230623
  Transmission Date: 20230722
  Serious: No
  Sender: FDA-Public Use
  Company Number: US-002147023-NVSC2023US138830

PATIENT
  Age: 46 Year
  Sex: Male
  Weight: 67.9 kg

DRUGS (7)
  1. AZITHROMYCIN [Suspect]
     Active Substance: AZITHROMYCIN
     Indication: Mycobacterium kansasii infection
     Dosage: 1 DOSAGE FORM, QD  (1 TAB CONTAINS 500 MG) (3 REFILLS)
     Route: 048
  2. ALBUTEROL SULFATE [Suspect]
     Active Substance: ALBUTEROL SULFATE
     Indication: Product used for unknown indication
     Dosage: UNK (STRENGTH: 90 MCG/INH)
     Route: 065
  3. CLARITHROMYCIN [Suspect]
     Active Substance: CLARITHROMYCIN
     Dosage: UNK
     Route: 065
  4. NAPROXEN [Suspect]
     Active Substance: NAPROXEN
     Indication: Product used for unknown indication
     Dosage: UNK
     Route: 048
  5. RIFABUTIN [Suspect]
     Active Substance: RIFABUTIN
     Dosage: 2 DOSAGE FORM, QD (EACH CAP CONTAIN 150 MG) (3 REFILLS)
     Route: 048
  6. ETHAMBUTOL [Suspect]
     Active Substance: ETHAMBUTOL HYDROCHLORIDE
     Indication: Mycobacterium kansasii infection
     Dosage: UNK
     Route: 065
  7. RIFAMPIN [Suspect]
     Active Substance: RIFAMPIN
     Indication: Mycobacterium kansasii infection
     Dosage: UNK
     Route: 065

REACTIONS (11)
  - Lung disorder [Unknown]
  - Night sweats [Unknown]
  - Productive cough [Unknown]
  - Chest pain [Unknown]
  - Dyspnoea [Unknown]
  - Weight decreased [Unknown]
  - Cough [Unknown]
  - Weight increased [Unknown]
  - Chills [Unknown]
  - Pain [Recovered/Resolved]
  - Fatigue [Unknown]

NARRATIVE: CASE EVENT DATE: 20220815
